FAERS Safety Report 7283230-3 (Version None)
Quarter: 2011Q1

REPORT INFORMATION
  Report Type: 
  Country: None (occurrence: None)
  Receive Date: 20110209
  Receipt Date: 20110128
  Transmission Date: 20110831
  Serious: Yes (Other)
  Sender: FDA-Public Use
  Company Number: US-SANOFI-AVENTIS-2011SA006069

PATIENT
  Age: 63 Year
  Sex: Male

DRUGS (11)
  1. MULTAQ [Suspect]
     Route: 048
     Dates: start: 20100901, end: 20110124
  2. COUMADIN [Concomitant]
  3. MAGNESIUM [Concomitant]
  4. MULTAQ [Suspect]
     Indication: ATRIAL FIBRILLATION
     Route: 048
     Dates: start: 20091101, end: 20100824
  5. METFORMIN HCL [Concomitant]
  6. PROTONIX [Concomitant]
  7. ZYRTEC [Concomitant]
  8. SPIRONOLACTONE [Concomitant]
  9. METOPROLOL [Concomitant]
  10. TAMSULOSIN HCL [Concomitant]
  11. CRESTOR [Concomitant]

REACTIONS (2)
  - ATRIAL FIBRILLATION [None]
  - HEPATOCELLULAR INJURY [None]
